FAERS Safety Report 13947517 (Version 2)
Quarter: 2017Q4

REPORT INFORMATION
  Report Type: Report from Study
  Country: US (occurrence: US)
  Receive Date: 20170908
  Receipt Date: 20171017
  Transmission Date: 20180320
  Serious: No
  Sender: FDA-Public Use
  Company Number: PHEH2017US027932

PATIENT
  Sex: Female

DRUGS (1)
  1. COSENTYX [Suspect]
     Active Substance: SECUKINUMAB
     Indication: PRODUCT USED FOR UNKNOWN INDICATION
     Dosage: 150 MG, QMO
     Route: 058

REACTIONS (6)
  - Product storage error [Unknown]
  - Injection site pain [Unknown]
  - Drug ineffective [Unknown]
  - Pain [Unknown]
  - Device defective [Unknown]
  - Back pain [Recovering/Resolving]
